FAERS Safety Report 22261663 (Version 3)
Quarter: 2023Q2

REPORT INFORMATION
  Report Type: Report from Study
  Country: US (occurrence: US)
  Receive Date: 20230427
  Receipt Date: 20230616
  Transmission Date: 20230722
  Serious: Yes (Hospitalization, Other)
  Sender: FDA-Public Use
  Company Number: US-ABBVIE-4744416

PATIENT
  Age: 71 Year
  Sex: Male

DRUGS (1)
  1. SKYRIZI [Suspect]
     Active Substance: RISANKIZUMAB-RZAA
     Indication: Psoriasis
     Route: 058

REACTIONS (4)
  - Spinal operation [Not Recovered/Not Resolved]
  - Injection site haemorrhage [Recovered/Resolved]
  - Hospitalisation [Unknown]
  - Nerve compression [Unknown]

NARRATIVE: CASE EVENT DATE: 20230421
